FAERS Safety Report 15500023 (Version 1)
Quarter: 2018Q4

REPORT INFORMATION
  Report Type: Report from Study
  Country: PA (occurrence: PA)
  Receive Date: 20181015
  Receipt Date: 20181015
  Transmission Date: 20190205
  Serious: Yes (Other)
  Sender: FDA-Public Use
  Company Number: PHHY2018PA125473

PATIENT
  Age: 81 Year
  Sex: Female

DRUGS (1)
  1. EXFORGE [Suspect]
     Active Substance: AMLODIPINE BESYLATE\VALSARTAN
     Indication: PRODUCT USED FOR UNKNOWN INDICATION
     Dosage: UNK (AMLODIPINE 10 MG, VALSARTAN 320 MG)
     Route: 065

REACTIONS (3)
  - Fall [Unknown]
  - Cataract [Not Recovered/Not Resolved]
  - Hip fracture [Unknown]
